FAERS Safety Report 4409838-8 (Version None)
Quarter: 2004Q3

REPORT INFORMATION
  Report Type: 
  Country: None (occurrence: None)
  Receive Date: 20040726
  Receipt Date: 20040714
  Transmission Date: 20050211
  Serious: No
  Sender: FDA-Public Use
  Company Number: DE-JNJFOC-20040301828

PATIENT
  Sex: 0

DRUGS (1)
  1. REMICADE [Suspect]
     Dosage: INTRAVENOUS
     Route: 042

REACTIONS (1)
  - KAPOSI'S SARCOMA [None]
